FAERS Safety Report 13704480 (Version 1)
Quarter: 2017Q2

REPORT INFORMATION
  Report Type: Spontaneous
  Country: US (occurrence: US)
  Receive Date: 20170629
  Receipt Date: 20170629
  Transmission Date: 20170830
  Serious: Yes (Disabling)
  Sender: FDA-Public Use
  Company Number: None

PATIENT
  Age: 46 Year
  Sex: Female
  Weight: 101.2 kg

DRUGS (6)
  1. TURMERIC GOLDEN PASTE [Suspect]
     Active Substance: HERBALS\TURMERIC
  2. LISINOPRIL. [Concomitant]
     Active Substance: LISINOPRIL
  3. METOPROLOL SUCCINATE ER [Concomitant]
     Active Substance: METOPROLOL SUCCINATE
  4. SYNTHROID [Concomitant]
     Active Substance: LEVOTHYROXINE SODIUM
  5. LORAZEPAM. [Suspect]
     Active Substance: LORAZEPAM
     Indication: ANXIETY
     Dosage: ?          OTHER STRENGTH:MG;QUANTITY:90 TABLET(S); EVERY 6 HOURS ORAL?
     Route: 048
     Dates: start: 20080101, end: 20151201
  6. COCONUT OIL [Concomitant]
     Active Substance: COCONUT OIL

REACTIONS (15)
  - Withdrawal syndrome [None]
  - Suicidal ideation [None]
  - Anxiety [None]
  - Depersonalisation/derealisation disorder [None]
  - Loss of consciousness [None]
  - Cognitive disorder [None]
  - Dyspnoea [None]
  - Seizure [None]
  - Anger [None]
  - Disturbance in attention [None]
  - Akathisia [None]
  - Pain [None]
  - Emotional disorder [None]
  - Amnesia [None]
  - Crying [None]

NARRATIVE: CASE EVENT DATE: 20080101
